FAERS Safety Report 9017292 (Version 1)
Quarter: 2013Q1

REPORT INFORMATION
  Report Type: Spontaneous
  Country: US (occurrence: US)
  Receive Date: 20130117
  Receipt Date: 20130117
  Transmission Date: 20140127
  Serious: Yes (Other)
  Sender: FDA-Public Use
  Company Number: US-PFIZER INC-2013016156

PATIENT
  Sex: Male

DRUGS (1)
  1. VFEND [Suspect]
     Dosage: UNK

REACTIONS (2)
  - Pneumonia [Unknown]
  - Pulmonary oedema [Unknown]
